FAERS Safety Report 8141578-4 (Version None)
Quarter: 2012Q1

REPORT INFORMATION
  Report Type: 
  Country: None (occurrence: None)
  Receive Date: 20120216
  Receipt Date: 20111107
  Transmission Date: 20120608
  Serious: Yes (Other)
  Sender: FDA-Public Use
  Company Number: CA-JNJFOC-20120106981

PATIENT
  Sex: Female
  Weight: 53 kg

DRUGS (2)
  1. METHOTREXATE [Concomitant]
     Route: 065
  2. REMICADE [Suspect]
     Indication: CROHN'S DISEASE
     Route: 042
     Dates: start: 20100501

REACTIONS (4)
  - RESPIRATORY TRACT CONGESTION [None]
  - WHEEZING [None]
  - COUGH [None]
  - RALES [None]
